FAERS Safety Report 4384528-9 (Version None)
Quarter: 2004Q2

REPORT INFORMATION
  Report Type: 
  Country: None (occurrence: None)
  Receive Date: 20040610
  Receipt Date: 20040402
  Transmission Date: 20050107
  Serious: Yes (Other)
  Sender: FDA-Public Use
  Company Number: A03200401037

PATIENT
  Age: 74 Year
  Sex: Male
  Weight: 68.4932 kg

DRUGS (3)
  1. ELOXATIN [Suspect]
     Indication: COLORECTAL CANCER METASTATIC
     Dosage: 180 MG OTHER - INTRAVENOUS NOS
     Route: 042
     Dates: start: 20040331, end: 20040331
  2. ELOXATIN [Suspect]
     Indication: METASTASES TO LUNG
     Dosage: 180 MG OTHER - INTRAVENOUS NOS
     Route: 042
     Dates: start: 20040331, end: 20040331
  3. PRINIVIL [Suspect]
     Indication: HYPERTENSION
     Dosage: ORAL
     Route: 048
     Dates: start: 20040324

REACTIONS (3)
  - ANGIONEUROTIC OEDEMA [None]
  - DRUG INTERACTION POTENTIATION [None]
  - SWELLING FACE [None]
